FAERS Safety Report 11169028 (Version 1)
Quarter: 2015Q2

REPORT INFORMATION
  Report Type: Report from Study
  Country: BR (occurrence: BR)
  Receive Date: 20150605
  Receipt Date: 20150605
  Transmission Date: 20150821
  Serious: Yes (Other)
  Sender: FDA-Public Use
  Company Number: BR-ABBVIE-15P-020-1399846-00

PATIENT
  Age: 20 Year
  Sex: Female

DRUGS (3)
  1. COMBIVIR [Concomitant]
     Active Substance: LAMIVUDINE\ZIDOVUDINE
     Indication: HIV INFECTION
     Dosage: TAKING AT CONCEPTION
     Route: 048
     Dates: start: 20140826
  2. REYATAZ [Concomitant]
     Active Substance: ATAZANAVIR SULFATE
     Indication: HIV INFECTION
     Dosage: TAKING AT CONCEPTION
     Route: 048
     Dates: start: 20140507
  3. RITONAVIR. [Suspect]
     Active Substance: RITONAVIR
     Indication: HIV INFECTION
     Dosage: TAKING AT CONCEPTION
     Route: 048
     Dates: start: 20140507

REACTIONS (1)
  - Abortion spontaneous [Unknown]
